FAERS Safety Report 6082211-5 (Version None)
Quarter: 2009Q1

REPORT INFORMATION
  Report Type: 
  Country: None (occurrence: None)
  Receive Date: 20090218
  Receipt Date: 20090211
  Transmission Date: 20090719
  Serious: Yes (Other)
  Sender: FDA-Public Use
  Company Number: B0558766A

PATIENT
  Age: 59 Year
  Sex: Male

DRUGS (4)
  1. MALARONE [Suspect]
     Indication: MALARIA
     Route: 065
     Dates: start: 20081218, end: 20090111
  2. CITANEST [Suspect]
     Dosage: 2AMP PER DAY
     Dates: start: 20090105, end: 20090105
  3. ZANIDIP [Concomitant]
     Indication: BLOOD PRESSURE
     Dosage: 20MG PER DAY
  4. ORLOC [Concomitant]
     Indication: BLOOD PRESSURE
     Dosage: 5MG PER DAY
     Route: 065

REACTIONS (4)
  - CONTUSION [None]
  - DRUG INTERACTION [None]
  - HAEMORRHAGE [None]
  - ORAL MUCOSAL EXFOLIATION [None]
